FAERS Safety Report 16403700 (Version 1)
Quarter: 2019Q3

REPORT INFORMATION
  Report Type: Spontaneous
  Country: US (occurrence: US)
  Receive Date: 20190606
  Receipt Date: 20190606
  Transmission Date: 20191004
  Serious: No
  Sender: FDA-Public Use
  Company Number: None

PATIENT
  Sex: Female

DRUGS (1)
  1. AMOXICILLIN 400 MG/5 ML SANDOZ [Suspect]
     Active Substance: AMOXICILLIN

REACTIONS (1)
  - Urticaria [None]
